FAERS Safety Report 23899573 (Version 1)
Quarter: 2024Q2

REPORT INFORMATION
  Report Type: Spontaneous
  Country: US (occurrence: None)
  Receive Date: 20240526
  Receipt Date: 20240526
  Transmission Date: 20240716
  Serious: No
  Sender: FDA-Public Use
  Company Number: US-ROCHE-3541589

PATIENT
  Age: 62 Year
  Sex: Female
  Weight: 90.346 kg

DRUGS (2)
  1. ACTEMRA [Suspect]
     Active Substance: TOCILIZUMAB
     Indication: Rheumatoid arthritis
     Route: 058
     Dates: start: 202401
  2. ACTEMRA [Suspect]
     Active Substance: TOCILIZUMAB

REACTIONS (5)
  - Product dose omission issue [Unknown]
  - Product storage error [Unknown]
  - Device defective [Unknown]
  - Drug delivery system malfunction [Unknown]
  - No adverse event [Unknown]

NARRATIVE: CASE EVENT DATE: 20240404
